FAERS Safety Report 24307604 (Version 1)
Quarter: 2024Q3

REPORT INFORMATION
  Report Type: Spontaneous
  Country: ES (occurrence: ES)
  Receive Date: 20240911
  Receipt Date: 20240911
  Transmission Date: 20241017
  Serious: Yes (Hospitalization, Other)
  Sender: GLAND PHARMA
  Company Number: ES-GLANDPHARMA-ES-2024GLNLIT00738

PATIENT
  Age: 65 Year
  Sex: Male

DRUGS (3)
  1. PACLITAXEL [Suspect]
     Active Substance: PACLITAXEL
     Indication: Leukocytosis
     Route: 065
  2. CARBOPLATIN [Suspect]
     Active Substance: CARBOPLATIN
     Indication: Leukocytosis
     Route: 065
  3. PIPERACILLIN SODIUM\TAZOBACTAM SODIUM [Concomitant]
     Active Substance: PIPERACILLIN SODIUM\TAZOBACTAM SODIUM
     Indication: Pyelonephritis chronic
     Route: 065

REACTIONS (4)
  - Chronic kidney disease [Recovering/Resolving]
  - Tumour lysis syndrome [Recovering/Resolving]
  - Neutropenia [Recovering/Resolving]
  - Product use in unapproved indication [Unknown]
